FAERS Safety Report 11377971 (Version 2)
Quarter: 2015Q3

REPORT INFORMATION
  Report Type: Spontaneous
  Country: US (occurrence: US)
  Receive Date: 20150811
  Receipt Date: 20150903
  Transmission Date: 20151125
  Serious: No
  Sender: FDA-Public Use
  Company Number: US-ELI_LILLY_AND_COMPANY-US200910005479

PATIENT
  Sex: Female

DRUGS (8)
  1. HUMULIN 70/30 [Suspect]
     Active Substance: INSULIN HUMAN
     Dosage: UNK, AS NEEDED
  2. METFORMIN [Concomitant]
     Active Substance: METFORMIN HYDROCHLORIDE
  3. SYMLIN [Concomitant]
     Active Substance: PRAMLINTIDE ACETATE
  4. LANTUS [Concomitant]
     Active Substance: INSULIN GLARGINE
  5. HIZAAR [Concomitant]
     Active Substance: HYDROCHLOROTHIAZIDE\LOSARTAN POTASSIUM
  6. HUMULIN 70/30 [Suspect]
     Active Substance: INSULIN HUMAN
     Dosage: 5 U, DAILY (1/D)
  7. TOPROL XL [Concomitant]
     Active Substance: METOPROLOL SUCCINATE
  8. HUMALOG MIX75/25 [Suspect]
     Active Substance: INSULIN LISPRO
     Dosage: UNK, UNK

REACTIONS (4)
  - Wrong technique in product usage process [Unknown]
  - Blood glucose increased [Recovered/Resolved]
  - Glycosylated haemoglobin increased [Unknown]
  - Incorrect dose administered [Unknown]

NARRATIVE: CASE EVENT DATE: 200909
